FAERS Safety Report 17818311 (Version 1)
Quarter: 2020Q2

REPORT INFORMATION
  Report Type: Report from Study
  Country: US (occurrence: US)
  Receive Date: 20200522
  Receipt Date: 20200522
  Transmission Date: 20200714
  Serious: Yes (Other)
  Sender: FDA-Public Use
  Company Number: US-UCBSA-2020020855

PATIENT
  Sex: Male

DRUGS (1)
  1. CERTOLIZUMAB PEGOL [Suspect]
     Active Substance: CERTOLIZUMAB PEGOL
     Indication: CROHN^S DISEASE
     Dosage: 200 MILLIGRAM, EV 4 WEEKS

REACTIONS (4)
  - Infection parasitic [Not Recovered/Not Resolved]
  - Off label use [Unknown]
  - Subcutaneous abscess [Not Recovered/Not Resolved]
  - Rash [Not Recovered/Not Resolved]
